FAERS Safety Report 25549680 (Version 4)
Quarter: 2025Q4

REPORT INFORMATION
  Report Type: Spontaneous
  Country: US (occurrence: US)
  Receive Date: 20250714
  Receipt Date: 20251023
  Transmission Date: 20260117
  Serious: No
  Sender: BRISTOL-MYERS SQUIBB COMPANY
  Company Number: US-BRISTOL-MYERS SQUIBB COMPANY-2025-098427

PATIENT
  Age: 72 Year
  Sex: Male
  Weight: 102.25 kg

DRUGS (12)
  1. POMALYST [Suspect]
     Active Substance: POMALIDOMIDE
     Indication: Plasma cell myeloma
     Dates: start: 20250710
  2. POMALYST [Suspect]
     Active Substance: POMALIDOMIDE
     Dates: start: 20250612
  3. POMALYST [Suspect]
     Active Substance: POMALIDOMIDE
     Dates: start: 20250904
  4. POMALYST [Suspect]
     Active Substance: POMALIDOMIDE
     Dates: start: 20250904
  5. POMALYST [Suspect]
     Active Substance: POMALIDOMIDE
     Dates: start: 20250110
  6. POMALYST [Suspect]
     Active Substance: POMALIDOMIDE
  7. ACYCLOVIR [Concomitant]
     Active Substance: ACYCLOVIR
     Indication: Product used for unknown indication
  8. DEXAMETHASONE [Concomitant]
     Active Substance: DEXAMETHASONE
     Indication: Product used for unknown indication
  9. ERGOCALCIFEROL [Concomitant]
     Active Substance: ERGOCALCIFEROL
     Indication: Product used for unknown indication
  10. PROFILE [OMEPRAZOLE] [Concomitant]
     Indication: Product used for unknown indication
     Dosage: COMPLETE
  11. ACYCLOVIR [Concomitant]
     Active Substance: ACYCLOVIR
     Indication: Product used for unknown indication
  12. ASPIRIN [Concomitant]
     Active Substance: ASPIRIN
     Indication: Product used for unknown indication

REACTIONS (3)
  - Upper respiratory tract infection [Recovered/Resolved]
  - Paronychia [Unknown]
  - Oedema peripheral [Unknown]

NARRATIVE: CASE EVENT DATE: 20250628
